FAERS Safety Report 15285400 (Version 1)
Quarter: 2018Q3

REPORT INFORMATION
  Report Type: Spontaneous
  Country: US (occurrence: US)
  Receive Date: 20180802
  Receipt Date: 20180802
  Transmission Date: 20181010
  Serious: Yes (Hospitalization)
  Sender: FDA-Public Use
  Company Number: None

PATIENT
  Age: 63 Year
  Sex: Female

DRUGS (7)
  1. MULTIV NUCYNTA [Concomitant]
  2. POTASSIUM [Concomitant]
     Active Substance: POTASSIUM
  3. FERROUS SULF [Concomitant]
     Active Substance: FERROUS SULFATE
  4. ESTRADIOL. [Concomitant]
     Active Substance: ESTRADIOL
  5. OXYMORPHONE [Concomitant]
     Active Substance: OXYMORPHONE
  6. CYMBALTA [Concomitant]
     Active Substance: DULOXETINE HYDROCHLORIDE
  7. TASIGNA [Suspect]
     Active Substance: NILOTINIB
     Indication: CHRONIC MYELOID LEUKAEMIA
     Route: 048
     Dates: start: 20160222

REACTIONS (1)
  - Dyspnoea [None]

NARRATIVE: CASE EVENT DATE: 201808
